FAERS Safety Report 5714162-7 (Version None)
Quarter: 2008Q2

REPORT INFORMATION
  Report Type: 
  Country: None (occurrence: None)
  Receive Date: 20080423
  Receipt Date: 20070705
  Transmission Date: 20081010
  Serious: No
  Sender: FDA-Public Use
  Company Number: US-KINGPHARMUSA00001-K200700861

PATIENT

DRUGS (4)
  1. SKELAXIN [Suspect]
     Indication: MUSCLE SPASMS
     Dosage: 800 MG, QD
  2. SKELAXIN [Suspect]
     Dosage: 800 MG, BID
  3. PIROXICAM [Concomitant]
  4. OMEPRAZOLE [Concomitant]

REACTIONS (5)
  - ARTHRALGIA [None]
  - HEADACHE [None]
  - LETHARGY [None]
  - PHOTOSENSITIVITY REACTION [None]
  - TREMOR [None]
